FAERS Safety Report 5466726-6 (Version None)
Quarter: 2007Q3

REPORT INFORMATION
  Report Type: 
  Country: None (occurrence: None)
  Receive Date: 20070920
  Receipt Date: 20070904
  Transmission Date: 20080115
  Serious: Yes (Hospitalization)
  Sender: FDA-Public Use
  Company Number: S07-GER-00800-01

PATIENT
  Age: 42 Year
  Sex: Female
  Weight: 70 kg

DRUGS (2)
  1. CITALOPRAM HYDROBROMIDE [Suspect]
     Indication: SEASONAL AFFECTIVE DISORDER
     Dosage: 20 MG QD PO
     Route: 048
     Dates: start: 20061001, end: 20070110
  2. VIGIL (MODAFINIL) [Concomitant]

REACTIONS (8)
  - COORDINATION ABNORMAL [None]
  - DYSTONIA [None]
  - FATIGUE [None]
  - MIGRAINE [None]
  - MULTIPLE SYSTEM ATROPHY [None]
  - MYOCLONUS [None]
  - NAUSEA [None]
  - NO THERAPEUTIC RESPONSE [None]
